FAERS Safety Report 8195607 (Version 5)
Quarter: 2012Q4

REPORT INFORMATION
  Report Type: 
  Country: FR (occurrence: FR)
  Receive Date: 20111024
  Receipt Date: 20120927
  Transmission Date: 20130627
  Serious: Yes (Hospitalization, Other)
  Sender: FDA-Public Use
  Company Number: FR-ALLERGAN-1113772US

PATIENT
  Age: 82 Year
  Sex: Male
  Weight: 85 kg

DRUGS (2)
  1. OZURDEX [Suspect]
     Indication: CENTRAL RETINAL VEIN OCCLUSION
     Dosage: 0.7 mg, single
     Route: 031
     Dates: start: 20111003, end: 20111003
  2. OZURDEX [Suspect]
     Dosage: 0.7 mg, single
     Dates: start: 20111003, end: 20111003

REACTIONS (1)
  - Retinal detachment [Recovering/Resolving]
